FAERS Safety Report 8058760-7 (Version None)
Quarter: 2012Q1

REPORT INFORMATION
  Report Type: 
  Country: None (occurrence: None)
  Receive Date: 20120113
  Receipt Date: 20120110
  Transmission Date: 20120608
  Serious: Yes (Death)
  Sender: FDA-Public Use
  Company Number: 1000026985

PATIENT
  Age: 73 Year
  Sex: Female

DRUGS (5)
  1. LOTENSIN [Suspect]
  2. DILTIAZEM HYDROCHLORIDE [Suspect]
  3. ATENOLOL [Suspect]
  4. METHOTREXATE [Suspect]
  5. HYDROXYCHLOROQUINE SULFATE [Concomitant]

REACTIONS (1)
  - CARDIO-RESPIRATORY ARREST [None]
